FAERS Safety Report 23509866 (Version 1)
Quarter: 2024Q1

REPORT INFORMATION
  Report Type: Spontaneous
  Country: FR (occurrence: FR)
  Receive Date: 20240211
  Receipt Date: 20240211
  Transmission Date: 20240409
  Serious: Yes (Hospitalization, Other)
  Sender: FDA-Public Use
  Company Number: FR-009507513-2312FRA008360

PATIENT
  Age: 49 Year
  Sex: Female
  Weight: 79 kg

DRUGS (12)
  1. CARBOPLATIN [Suspect]
     Active Substance: CARBOPLATIN
     Indication: Triple negative breast cancer
     Dosage: 600 MILLIGRAM, *BIWEEKLY
     Route: 042
     Dates: start: 20230719, end: 20230814
  2. CARBOPLATIN [Suspect]
     Active Substance: CARBOPLATIN
     Dosage: DECREASED 75%
     Route: 042
     Dates: start: 20230814, end: 20231002
  3. FERINJECT [Suspect]
     Active Substance: FERRIC CARBOXYMALTOSE
     Indication: Anaemia
     Dosage: 500 MILLIGRAM, ONCE A DAY
     Route: 042
     Dates: start: 20230911, end: 20230911
  4. KEYTRUDA [Suspect]
     Active Substance: PEMBROLIZUMAB
     Indication: Triple negative breast cancer
     Dosage: 200 MILLIGRAM, Q3W
     Route: 065
     Dates: start: 20230719, end: 20230719
  5. KEYTRUDA [Suspect]
     Active Substance: PEMBROLIZUMAB
     Dosage: 200 MILLIGRAM, Q3W
     Route: 065
     Dates: start: 20230807, end: 20230807
  6. KEYTRUDA [Suspect]
     Active Substance: PEMBROLIZUMAB
     Dosage: 200 MILLIGRAM, Q3W
     Route: 065
     Dates: start: 20230828, end: 20230828
  7. KEYTRUDA [Suspect]
     Active Substance: PEMBROLIZUMAB
     Dosage: 200 MILLIGRAM, Q3W
     Route: 042
     Dates: start: 20230918, end: 20230918
  8. TAXOL [Suspect]
     Active Substance: PACLITAXEL
     Indication: Triple negative breast cancer
     Dosage: 80 MILLIGRAM/KILOGRAM, BIWEEKLY
     Route: 042
     Dates: start: 20230719, end: 20230911
  9. TAXOL [Suspect]
     Active Substance: PACLITAXEL
     Dosage: 65 MILLIGRAM/KILOGRAM, DECREASED
     Route: 065
     Dates: start: 20230911, end: 20231002
  10. OLANZAPINE [Concomitant]
     Active Substance: OLANZAPINE
     Indication: Product used for unknown indication
     Dosage: 5 MILLIGRAM, ONCE A DAY
     Route: 065
  11. ACETAMINOPHEN [Concomitant]
     Active Substance: ACETAMINOPHEN
     Indication: Pain
     Dosage: 1 GRAM
     Route: 065
  12. ANTIHISTAMINES NOS [Concomitant]
     Active Substance: ANTIHISTAMINES NOS
     Indication: Hypersensitivity
     Dosage: UNK
     Route: 065

REACTIONS (9)
  - Acute kidney injury [Unknown]
  - Dyspnoea [Unknown]
  - Dysphonia [Unknown]
  - Arthralgia [Unknown]
  - Drug intolerance [Unknown]
  - Lymphadenopathy [Recovered/Resolved]
  - Asthenia [Recovered/Resolved]
  - Viral infection [Unknown]
  - Inappropriate schedule of product administration [Unknown]

NARRATIVE: CASE EVENT DATE: 20230807
